FAERS Safety Report 11517529 (Version 1)
Quarter: 2015Q3

REPORT INFORMATION
  Report Type: Spontaneous
  Country: US (occurrence: US)
  Receive Date: 20150917
  Receipt Date: 20150917
  Transmission Date: 20151125
  Serious: Yes (Hospitalization, Other)
  Sender: FDA-Public Use
  Company Number: US-AMGEN-USASP2015094289

PATIENT
  Sex: Female

DRUGS (1)
  1. NEULASTA [Suspect]
     Active Substance: PEGFILGRASTIM
     Indication: PRODUCT USED FOR UNKNOWN INDICATION
     Dosage: UNK
     Route: 065

REACTIONS (24)
  - Renal cancer [Unknown]
  - Hepatic cancer [Unknown]
  - Musculoskeletal pain [Unknown]
  - Feeling abnormal [Unknown]
  - Diarrhoea [Unknown]
  - Gastric ulcer [Unknown]
  - Gastritis [Unknown]
  - Blood magnesium decreased [Unknown]
  - Blood potassium decreased [Unknown]
  - Neuropathy peripheral [Unknown]
  - Breast cancer [Unknown]
  - Incorrect route of drug administration [Unknown]
  - Adverse drug reaction [Unknown]
  - Gastritis erosive [Unknown]
  - Skin discolouration [Unknown]
  - Malaise [Not Recovered/Not Resolved]
  - Flatulence [Unknown]
  - Weight decreased [Unknown]
  - Mobility decreased [Unknown]
  - Blood electrolytes decreased [Unknown]
  - Cardiac disorder [Unknown]
  - Urticaria [Unknown]
  - Bone pain [Unknown]
  - Pain in extremity [Unknown]
